FAERS Safety Report 18478046 (Version 1)
Quarter: 2020Q4

REPORT INFORMATION
  Report Type: Spontaneous
  Country: JP (occurrence: JP)
  Receive Date: 20201108
  Receipt Date: 20201108
  Transmission Date: 20210114
  Serious: Yes (Other)
  Sender: FDA-Public Use
  Company Number: JP-ROCHE-2708413

PATIENT
  Age: 4 Decade
  Sex: Male

DRUGS (2)
  1. KYMRIAH [Suspect]
     Active Substance: TISAGENLECLEUCEL
     Indication: B-CELL LYMPHOMA
     Dosage: DOSAGE IS UNCERTAIN.
     Route: 041
  2. ACTEMRA [Suspect]
     Active Substance: TOCILIZUMAB
     Indication: CYTOKINE RELEASE SYNDROME
     Dosage: DOSE INTERVAL UNCERTAINTY
     Route: 065

REACTIONS (5)
  - Tumour lysis syndrome [Unknown]
  - Haemophagocytic lymphohistiocytosis [Unknown]
  - Serum ferritin abnormal [Unknown]
  - Aspartate aminotransferase abnormal [Recovered/Resolved]
  - White blood cell count decreased [Recovered/Resolved]
